FAERS Safety Report 6660385-2 (Version None)
Quarter: 2010Q1

REPORT INFORMATION
  Report Type: 
  Country: None (occurrence: None)
  Receive Date: 20100331
  Receipt Date: 20100317
  Transmission Date: 20100710
  Serious: Yes (Life-Threatening, Hospitalization)
  Sender: FDA-Public Use
  Company Number: GB-RANBAXY-2010RR-31217

PATIENT
  Age: 42 Year
  Sex: Female
  Weight: 105.95 kg

DRUGS (4)
  1. RAMIPRIL [Suspect]
     Indication: HYPERTENSION
     Dosage: 2.5 MG, QD
     Route: 048
     Dates: start: 20100208, end: 20100210
  2. CALCIUM CARBONATE [Suspect]
     Indication: HYPERTENSION
     Dosage: 1.25 G, QD
     Route: 048
     Dates: start: 20100208, end: 20100209
  3. FERROUS SULFATE TAB [Suspect]
     Indication: ANAEMIA
     Dosage: 200 MG, BID
     Route: 048
     Dates: start: 20100208, end: 20100209
  4. BENDROFLUMETHIAZIDE [Concomitant]
     Indication: HYPERTENSION
     Dosage: 2.5 MG, UNK
     Route: 048

REACTIONS (5)
  - FACIAL PAIN [None]
  - HYPERSENSITIVITY [None]
  - LIP SWELLING [None]
  - NASAL CONGESTION [None]
  - SWELLING FACE [None]
